FAERS Safety Report 12467377 (Version 2)
Quarter: 2016Q3

REPORT INFORMATION
  Report Type: Spontaneous
  Country: US (occurrence: US)
  Receive Date: 20160615
  Receipt Date: 20160808
  Transmission Date: 20161109
  Serious: Yes (Hospitalization)
  Sender: FDA-Public Use
  Company Number: US-PFIZER INC-2016293865

PATIENT
  Age: 55 Year
  Sex: Male
  Weight: 87 kg

DRUGS (1)
  1. SUTENT [Suspect]
     Active Substance: SUNITINIB MALATE
     Indication: METASTATIC RENAL CELL CARCINOMA
     Dosage: 50 MG, ALTERNATE DAY (EVERY OTHER DAY)
     Route: 048
     Dates: start: 20150101, end: 20160704

REACTIONS (3)
  - Pneumonia [Recovering/Resolving]
  - Metastatic renal cell carcinoma [Unknown]
  - Disease progression [Unknown]
